FAERS Safety Report 21588992 (Version 1)
Quarter: 2022Q4

REPORT INFORMATION
  Report Type: Other
  Country: IE (occurrence: IE)
  Receive Date: 20221114
  Receipt Date: 20221114
  Transmission Date: 20230113
  Serious: Yes (Life-Threatening, Hospitalization, Other)
  Sender: FDA-Public Use
  Company Number: IE-DEXPHARM-20222281

PATIENT
  Age: 63 Year
  Sex: Female

DRUGS (6)
  1. ASTRAZENECA COVID-19 VACCINE [Interacting]
     Active Substance: AZD-1222
     Dosage: FIRST DOSE
  2. ESOMEPRAZOLE [Interacting]
     Active Substance: ESOMEPRAZOLE
     Dosage: 20 MG ONCE DAILY
  3. ESCITALOPRAM [Interacting]
     Active Substance: ESCITALOPRAM OXALATE
     Dosage: 10 MG ONCE DAILY
  4. NEBIVOLOL [Concomitant]
     Active Substance: NEBIVOLOL
     Dosage: 5 MG ONCE DAILY
  5. Furosemide/ Amiloride hydrochloride [Concomitant]
     Dosage: 40/5 MG ONCE DAILY
  6. ASPIRIN [Concomitant]
     Active Substance: ASPIRIN
     Dosage: 75 MG ONCE DAILY

REACTIONS (2)
  - Drug interaction [Recovered/Resolved]
  - Ventricular tachycardia [Recovered/Resolved]
